FAERS Safety Report 5755438-7 (Version None)
Quarter: 2008Q2

REPORT INFORMATION
  Report Type: 
  Country: None (occurrence: None)
  Receive Date: 20080602
  Receipt Date: 20080529
  Transmission Date: 20081010
  Serious: Yes (Hospitalization)
  Sender: FDA-Public Use
  Company Number: IT-BAYER-200819273GPV

PATIENT
  Age: 70 Year
  Sex: Male
  Weight: 55 kg

DRUGS (10)
  1. SORAFENIB [Suspect]
     Indication: PANCREATIC CARCINOMA
     Route: 048
     Dates: start: 20080326, end: 20080507
  2. CISPLATIN [Suspect]
     Indication: PANCREATIC CARCINOMA
     Route: 042
     Dates: start: 20080326, end: 20080402
  3. GEMCITABINE [Suspect]
     Indication: PANCREATIC CARCINOMA
     Route: 042
     Dates: start: 20080326, end: 20080507
  4. MEDROL [Concomitant]
     Indication: ASTHMA PROPHYLAXIS
     Route: 048
     Dates: start: 20080326, end: 20080502
  5. ZOFENOPRIL [Concomitant]
     Indication: CARDIOVASCULAR EVENT PROPHYLAXIS
     Route: 048
     Dates: start: 20080221
  6. BISOPROLOL FUMARATE [Concomitant]
     Indication: CARDIOVASCULAR EVENT PROPHYLAXIS
     Route: 048
     Dates: start: 20080221
  7. CLOPIDOGREL [Concomitant]
     Indication: CARDIOVASCULAR EVENT PROPHYLAXIS
     Route: 048
     Dates: start: 20080221
  8. RABEPRAZOLE SODIUM [Concomitant]
     Indication: PROPHYLAXIS
     Route: 048
     Dates: start: 20080225
  9. ANALGESIC [Concomitant]
     Indication: PAIN
     Route: 048
     Dates: start: 20080221
  10. PLASIL [Concomitant]
     Indication: NAUSEA
     Route: 048
     Dates: start: 20080326

REACTIONS (4)
  - DEEP VEIN THROMBOSIS [None]
  - HYPERGLYCAEMIA [None]
  - HYPOALBUMINAEMIA [None]
  - OEDEMA [None]
